FAERS Safety Report 19519902 (Version 1)
Quarter: 2021Q3

REPORT INFORMATION
  Report Type: Spontaneous
  Country: US (occurrence: US)
  Receive Date: 20210712
  Receipt Date: 20210712
  Transmission Date: 20211014
  Serious: No
  Sender: FDA-Public Use
  Company Number: None

PATIENT
  Age: 6 Year
  Sex: Female
  Weight: 21.6 kg

DRUGS (2)
  1. SMARTY PANTS VITAMINS [Concomitant]
  2. MIRALAX [Suspect]
     Active Substance: POLYETHYLENE GLYCOL 3350
     Indication: CONSTIPATION
     Dosage: ?          QUANTITY:17 GRAMS;?
     Dates: start: 20191001, end: 20200630

REACTIONS (8)
  - Screaming [None]
  - Abnormal behaviour [None]
  - Haemorrhage [None]
  - Anxiety [None]
  - Bite [None]
  - Mood swings [None]
  - Panic attack [None]
  - Anger [None]

NARRATIVE: CASE EVENT DATE: 20191016
